FAERS Safety Report 6133692-X (Version None)
Quarter: 2009Q1

REPORT INFORMATION
  Report Type: 
  Country: None (occurrence: None)
  Receive Date: 20090326
  Receipt Date: 20090319
  Transmission Date: 20090719
  Serious: Yes (Other)
  Sender: FDA-Public Use
  Company Number: B0565412A

PATIENT
  Age: 51 Year
  Sex: Female

DRUGS (3)
  1. SERETIDE DISKUS [Suspect]
     Indication: ASTHMA
     Route: 055
     Dates: start: 20090105, end: 20090303
  2. SINGULAIR [Concomitant]
     Indication: ASTHMA
     Dosage: 10MG PER DAY
     Route: 048
     Dates: start: 20090105
  3. SEREVENT [Concomitant]
     Route: 055

REACTIONS (2)
  - METRORRHAGIA [None]
  - OVARIAN FAILURE [None]
